FAERS Safety Report 12560563 (Version 1)
Quarter: 2016Q3

REPORT INFORMATION
  Report Type: Spontaneous
  Country: US (occurrence: US)
  Receive Date: 20160715
  Receipt Date: 20160715
  Transmission Date: 20161109
  Serious: No
  Sender: FDA-Public Use
  Company Number: US-JNJFOC-20160602181

PATIENT
  Age: 45 Year
  Sex: Male
  Weight: 63.5 kg

DRUGS (3)
  1. MENS ROGAINE EXTRA STRENGTH [Suspect]
     Active Substance: MINOXIDIL
     Route: 061
  2. HYDROCHLOROTHIAZIDE. [Concomitant]
     Active Substance: HYDROCHLOROTHIAZIDE
     Indication: HYPERTENSION
     Dosage: USING FOR MONTHS
     Route: 065
  3. MENS ROGAINE EXTRA STRENGTH [Suspect]
     Active Substance: MINOXIDIL
     Indication: ALOPECIA
     Dosage: LITTLE MORE THAN A CAPFUL
     Route: 061
     Dates: start: 20160531, end: 20160531

REACTIONS (3)
  - Skin irritation [Recovering/Resolving]
  - Overdose [Recovering/Resolving]
  - Self-medication [Recovering/Resolving]

NARRATIVE: CASE EVENT DATE: 20160531
